FAERS Safety Report 5933447-2 (Version None)
Quarter: 2008Q4

REPORT INFORMATION
  Report Type: 
  Country: None (occurrence: None)
  Receive Date: 20081022
  Receipt Date: 20070531
  Transmission Date: 20090506
  Serious: Yes (Hospitalization)
  Sender: FDA-Public Use
  Company Number: US-WYE-H06418708

PATIENT

DRUGS (1)
  1. ROBITUSSIN COUGH LONG ACTING (DEXTROMETHORPHAN HYDROBROMIDE, UNSPEC.) [Suspect]
     Dosage: ORAL
     Route: 048

REACTIONS (1)
  - DRUG ABUSE [None]
